FAERS Safety Report 4435830-3 (Version None)
Quarter: 2004Q3

REPORT INFORMATION
  Report Type: 
  Country: None (occurrence: None)
  Receive Date: 20040826
  Receipt Date: 20420817
  Transmission Date: 20050211
  Serious: Yes (Other)
  Sender: FDA-Public Use
  Company Number: 2004229156US

PATIENT
  Age: 22 Year
  Sex: Male

DRUGS (1)
  1. XANAX [Suspect]
     Indication: ANXIETY
     Dosage: 1 MG, QD

REACTIONS (8)
  - AGORAPHOBIA [None]
  - DEPRESSION [None]
  - HYPERSOMNIA [None]
  - MEDICATION ERROR [None]
  - MOOD SWINGS [None]
  - NERVOUSNESS [None]
  - SELF-MEDICATION [None]
  - SUICIDAL IDEATION [None]
